FAERS Safety Report 9087981 (Version 3)
Quarter: 2013Q2

REPORT INFORMATION
  Report Type: Spontaneous
  Country: US (occurrence: US)
  Receive Date: 20130201
  Receipt Date: 20130410
  Transmission Date: 20140414
  Serious: Yes (Life-Threatening, Hospitalization, Congenital Anomaly, Other)
  Sender: FDA-Public Use
  Company Number: US-PFIZER INC-2013040246

PATIENT
  Sex: Male
  Weight: 2.4 kg

DRUGS (8)
  1. PREDNISONE [Concomitant]
     Dosage: UNK
     Route: 064
     Dates: start: 20040414
  2. VENTOLIN HFA [Concomitant]
     Route: 064
  3. ZOLOFT [Suspect]
     Indication: DEPRESSION
     Dosage: UNK
     Route: 064
     Dates: start: 1999
  4. ZOLOFT [Suspect]
     Dosage: 50 MG, HALF TABLET PER DAY
     Route: 064
     Dates: start: 20030521
  5. ZOLOFT [Suspect]
     Dosage: 50 UNKNOWN UNITS, UNK
     Route: 064
     Dates: start: 200403
  6. DIPHENHYDRAMINE [Concomitant]
     Dosage: UNK
     Route: 064
     Dates: start: 20030922
  7. ALBUTEROL [Concomitant]
     Dosage: UNK
     Route: 064
     Dates: start: 20030922
  8. PRENATAL VITAMINS [Concomitant]
     Dosage: UNK
     Route: 064
     Dates: start: 20031013

REACTIONS (45)
  - Maternal exposure timing unspecified [Unknown]
  - Fallot^s tetralogy [Unknown]
  - Patent ductus arteriosus [Recovered/Resolved]
  - Ventricular septal defect [Recovered/Resolved]
  - Double outlet right ventricle [Unknown]
  - Atrial septal defect [Recovered/Resolved]
  - Pulmonary artery atresia [Unknown]
  - Bundle branch block right [Unknown]
  - Right aortic arch [Unknown]
  - Pulmonary vascular disorder [Unknown]
  - DiGeorge^s syndrome [Unknown]
  - Respiratory failure [Unknown]
  - Aortic valve incompetence [Unknown]
  - Tricuspid valve incompetence [Unknown]
  - Mitral valve incompetence [Unknown]
  - Pulmonary valve incompetence [Unknown]
  - Gross motor delay [Recovering/Resolving]
  - Cerebral haemorrhage [Unknown]
  - Hypospadias [Unknown]
  - Congenital central nervous system anomaly [Unknown]
  - Otitis media [Unknown]
  - Shwachman-Diamond syndrome [Unknown]
  - Pachygyria [Unknown]
  - Right ventricular hypertrophy [Unknown]
  - Cardiomegaly [Unknown]
  - Fine motor delay [Recovering/Resolving]
  - Micrognathia [Unknown]
  - Arachnodactyly [Unknown]
  - Dysmorphism [Unknown]
  - Neck deformity [Unknown]
  - Congenital nose malformation [Unknown]
  - Inguinal hernia [Unknown]
  - Convulsion [Unknown]
  - Penile torsion [Unknown]
  - Congenital anomaly [Unknown]
  - Limb deformity [Unknown]
  - Cognitive disorder [Recovering/Resolving]
  - Mitral valve prolapse [Unknown]
  - Pulmonary valve stenosis [Unknown]
  - Motor dysfunction [Recovering/Resolving]
  - Speech disorder developmental [Recovering/Resolving]
  - Cerebral ischaemia [Unknown]
  - Failure to thrive [Unknown]
  - Small for dates baby [Unknown]
  - Head lag [Unknown]
